FAERS Safety Report 4800269-5 (Version None)
Quarter: 2005Q4

REPORT INFORMATION
  Report Type: 
  Country: None (occurrence: None)
  Receive Date: 20051017
  Receipt Date: 20051005
  Transmission Date: 20060501
  Serious: Yes (Disabling)
  Sender: FDA-Public Use
  Company Number: PR-MERCK-0510USA04840

PATIENT
  Age: 54 Year
  Sex: Male

DRUGS (6)
  1. VIOXX [Suspect]
     Indication: ARTHRALGIA
     Route: 048
  2. VIOXX [Suspect]
     Indication: ARTHRITIS
     Route: 048
  3. BEXTRA [Suspect]
     Indication: ARTHRALGIA
     Route: 065
  4. BEXTRA [Suspect]
     Indication: ARTHRITIS
     Route: 065
  5. CELEBREX [Suspect]
     Indication: ARTHRALGIA
     Route: 065
  6. CELEBREX [Suspect]
     Indication: ARTHRITIS
     Route: 065

REACTIONS (12)
  - ASTHENIA [None]
  - BLOOD URINE PRESENT [None]
  - CHEST PAIN [None]
  - DIZZINESS [None]
  - DYSPNOEA [None]
  - EMOTIONAL DISORDER [None]
  - FATIGUE [None]
  - GAIT DISTURBANCE [None]
  - HYPOAESTHESIA [None]
  - MYOCARDIAL INFARCTION [None]
  - OEDEMA PERIPHERAL [None]
  - PAIN IN EXTREMITY [None]
